FAERS Safety Report 6283334-8 (Version None)
Quarter: 2009Q3

REPORT INFORMATION
  Report Type: 
  Country: None (occurrence: None)
  Receive Date: 20090724
  Receipt Date: 20090715
  Transmission Date: 20100115
  Serious: Yes (Hospitalization)
  Sender: FDA-Public Use
  Company Number: BR-ABBOTT-09P-020-0585377-00

PATIENT
  Age: 54 Year
  Sex: Male

DRUGS (3)
  1. FENOFIBRATE [Suspect]
     Indication: HYPERTRIGLYCERIDAEMIA
     Route: 065
  2. PROPRANOLOL [Suspect]
     Indication: HYPERTENSION
     Route: 065
  3. NIFEDIPINE [Concomitant]
     Indication: HYPERTENSION

REACTIONS (5)
  - ALANINE AMINOTRANSFERASE INCREASED [None]
  - BLOOD LACTATE DEHYDROGENASE INCREASED [None]
  - PRIMARY HYPOTHYROIDISM [None]
  - RENAL FAILURE CHRONIC [None]
  - RHABDOMYOLYSIS [None]
